FAERS Safety Report 6779550-9 (Version None)
Quarter: 2010Q2

REPORT INFORMATION
  Report Type: 
  Country: None (occurrence: None)
  Receive Date: 20100603
  Receipt Date: 20021204
  Transmission Date: 20101027
  Serious: Yes (Hospitalization)
  Sender: FDA-Public Use
  Company Number: 2002070032

PATIENT
  Age: 72 Year
  Sex: Male

DRUGS (3)
  1. VIAGRA [Suspect]
     Indication: ERECTILE DYSFUNCTION
     Dosage: DAILY, ORAL
     Route: 048
     Dates: start: 19990901, end: 19990901
  2. MAALOX (MAGNESIUM HYDROXIDE/ALUMINIUM HYDROXIDE GEL) [Concomitant]
  3. AMOXICILLIN [Concomitant]

REACTIONS (1)
  - DERMATITIS EXFOLIATIVE [None]
